FAERS Safety Report 4618840-2 (Version None)
Quarter: 2005Q1

REPORT INFORMATION
  Report Type: 
  Country: None (occurrence: None)
  Receive Date: 20050323
  Receipt Date: 20050308
  Transmission Date: 20050727
  Serious: Yes (Other)
  Sender: FDA-Public Use
  Company Number: USA040874582

PATIENT
  Age: 82 Year
  Sex: Female
  Weight: 32 kg

DRUGS (5)
  1. FORTEO [Suspect]
     Indication: OSTEOPOROSIS
     Dates: start: 20040601
  2. VITAMINS [Concomitant]
  3. LESCOL [Concomitant]
  4. ZOLOFT [Concomitant]
  5. ULTRACET [Concomitant]

REACTIONS (8)
  - DIZZINESS [None]
  - FEELING ABNORMAL [None]
  - LOSS OF CONSCIOUSNESS [None]
  - MALAISE [None]
  - NAUSEA [None]
  - PHARMACEUTICAL PRODUCT COMPLAINT [None]
  - SKIN CANCER [None]
  - TREATMENT NONCOMPLIANCE [None]
